FAERS Safety Report 20463214 (Version 1)
Quarter: 2022Q1

REPORT INFORMATION
  Report Type: Spontaneous
  Country: IT (occurrence: IT)
  Receive Date: 20220211
  Receipt Date: 20220211
  Transmission Date: 20220423
  Serious: Yes (Death, Hospitalization, Other)
  Sender: FDA-Public Use
  Company Number: IT-002147023-NVSC2021IT218980

PATIENT
  Age: 78 Year
  Sex: Male

DRUGS (20)
  1. BENDAMUSTINE HYDROCHLORIDE [Suspect]
     Active Substance: BENDAMUSTINE HYDROCHLORIDE
     Indication: Product used for unknown indication
     Dosage: 138.6 MILLIGRAM DAILY; 138.6 MG, ONCE DAILY (CYCLIC)
     Route: 042
     Dates: start: 20210901, end: 20210902
  2. BENDAMUSTINE HYDROCHLORIDE [Suspect]
     Active Substance: BENDAMUSTINE HYDROCHLORIDE
     Dosage: 118 MG (100MG), CYCLIC
     Route: 042
     Dates: start: 20211026
  3. BENDAMUSTINE HYDROCHLORIDE [Suspect]
     Active Substance: BENDAMUSTINE HYDROCHLORIDE
     Route: 042
     Dates: start: 20210901, end: 20211027
  4. BENDAMUSTINE HYDROCHLORIDE [Suspect]
     Active Substance: BENDAMUSTINE HYDROCHLORIDE
     Route: 042
     Dates: start: 20210901, end: 20211027
  5. COPANLISIB [Suspect]
     Active Substance: COPANLISIB
     Indication: Product used for unknown indication
     Route: 042
     Dates: start: 20210901, end: 20210908
  6. COPANLISIB [Suspect]
     Active Substance: COPANLISIB
     Route: 042
     Dates: start: 20211026
  7. COPANLISIB [Suspect]
     Active Substance: COPANLISIB
     Route: 042
     Dates: start: 20210901, end: 20211102
  8. RITUXIMAB [Suspect]
     Active Substance: RITUXIMAB
     Indication: Product used for unknown indication
     Dosage: 742.5 MG (500 MG), UNKNOWN FREQ.
     Route: 042
     Dates: start: 20210901, end: 20211026
  9. RITUXIMAB [Suspect]
     Active Substance: RITUXIMAB
     Dosage: 742.5 MG (100 MG), UNKNOWN FREQ.
     Route: 042
     Dates: start: 20210901, end: 20211026
  10. RITUXIMAB [Suspect]
     Active Substance: RITUXIMAB
     Route: 042
     Dates: start: 20211026
  11. ALLOPURINOL [Concomitant]
     Active Substance: ALLOPURINOL
     Indication: Product used for unknown indication
     Route: 065
  12. LAMIVUDINE [Concomitant]
     Active Substance: LAMIVUDINE
     Indication: Product used for unknown indication
     Route: 065
  13. OMEPRAZOLE [Concomitant]
     Active Substance: OMEPRAZOLE
     Indication: Product used for unknown indication
     Route: 065
  14. ALPRAZOLAM [Concomitant]
     Active Substance: ALPRAZOLAM
     Indication: Product used for unknown indication
     Dosage: 0.25 MG, UNKNOWN FREQ.
     Route: 065
  15. ISAVUCONAZOLE [Concomitant]
     Active Substance: ISAVUCONAZOLE
     Indication: Product used for unknown indication
     Dosage: 200 MILLIGRAM DAILY;
     Route: 065
  16. SILODOSIN [Concomitant]
     Active Substance: SILODOSIN
     Indication: Product used for unknown indication
     Route: 065
  17. FLECAINIDE [Concomitant]
     Active Substance: FLECAINIDE
     Indication: Product used for unknown indication
     Dosage: 200 MILLIGRAM DAILY;
     Route: 065
     Dates: start: 20210901
  18. FOLIC ACID [Concomitant]
     Active Substance: FOLIC ACID
     Indication: Product used for unknown indication
     Route: 065
  19. VALGANCICLOVIR [Concomitant]
     Active Substance: VALGANCICLOVIR
     Indication: Product used for unknown indication
     Dosage: 900 MILLIGRAM DAILY;
     Route: 065
  20. URSODIOL [Concomitant]
     Active Substance: URSODIOL
     Indication: Product used for unknown indication
     Route: 065

REACTIONS (12)
  - Dyspnoea [Fatal]
  - Asthenia [Fatal]
  - Cytomegalovirus infection reactivation [Fatal]
  - Atrial fibrillation [Fatal]
  - Hypotension [Fatal]
  - Staphylococcal infection [Fatal]
  - Abdominal pain upper [Fatal]
  - Pyrexia [Fatal]
  - Nausea [Fatal]
  - Septic shock [Fatal]
  - Rash [Unknown]
  - Chills [Recovered/Resolved]

NARRATIVE: CASE EVENT DATE: 20210910
